FAERS Safety Report 23056368 (Version 3)
Quarter: 2024Q1

REPORT INFORMATION
  Report Type: Spontaneous
  Country: US (occurrence: US)
  Receive Date: 20231011
  Receipt Date: 20240122
  Transmission Date: 20240410
  Serious: No
  Sender: FDA-Public Use
  Company Number: US-SANDOZ-SDZ2023US040939

PATIENT
  Sex: Female

DRUGS (1)
  1. ALBUTEROL SULFATE [Suspect]
     Active Substance: ALBUTEROL SULFATE
     Indication: Dyspnoea
     Dosage: 90 MCG/DOS 200 DOS (2-3 TIMES A DAILY)
     Route: 065

REACTIONS (3)
  - Drug ineffective [Unknown]
  - Drug delivery system issue [Unknown]
  - Product dose omission issue [Unknown]
